FAERS Safety Report 15724019 (Version 1)
Quarter: 2018Q4

REPORT INFORMATION
  Report Type: Spontaneous
  Country: US (occurrence: US)
  Receive Date: 20181214
  Receipt Date: 20181214
  Transmission Date: 20190205
  Serious: Yes (Other)
  Sender: FDA-Public Use
  Company Number: None

PATIENT
  Age: 80 Year
  Sex: Female
  Weight: 108.13 kg

DRUGS (22)
  1. FERROUS GLUCONATE [Concomitant]
     Active Substance: FERROUS GLUCONATE
  2. PROAIR HFA [Concomitant]
     Active Substance: ALBUTEROL SULFATE
  3. BUMETANIDE. [Concomitant]
     Active Substance: BUMETANIDE
  4. LANTUS [Concomitant]
     Active Substance: INSULIN GLARGINE
  5. NOVOLOG [Concomitant]
     Active Substance: INSULIN ASPART
  6. NYSTATIN. [Concomitant]
     Active Substance: NYSTATIN
  7. OCEAN SALINE NASAL SPRAY [Concomitant]
     Active Substance: SODIUM CHLORIDE
  8. CRANBERRY. [Concomitant]
     Active Substance: CRANBERRY
  9. ONDANSETRON [Concomitant]
     Active Substance: ONDANSETRON
  10. RISAMINE [Concomitant]
     Active Substance: MENTHOL\ZINC OXIDE
  11. AMLODIPINE [Concomitant]
     Active Substance: AMLODIPINE BESYLATE
  12. BISACODYL. [Concomitant]
     Active Substance: BISACODYL
  13. DEXAMETHASONE. [Concomitant]
     Active Substance: DEXAMETHASONE
  14. HUMALOG [Concomitant]
     Active Substance: INSULIN LISPRO
  15. INCRUSE ELLIPTA [Concomitant]
     Active Substance: UMECLIDINIUM BROMIDE
  16. SYSTANE (HYPROMELLOSE 2910 (4000 MPA.S)) [Concomitant]
     Active Substance: HYPROMELLOSE 2910 (4000 MPA.S)
  17. APAP [Concomitant]
     Active Substance: ACETAMINOPHEN
  18. ARANESP [Concomitant]
     Active Substance: DARBEPOETIN ALFA
  19. PRESERVISION [Concomitant]
     Active Substance: MINERALS\VITAMINS
  20. NINLARO [Suspect]
     Active Substance: IXAZOMIB CITRATE
     Indication: PLASMA CELL MYELOMA
     Route: 048
     Dates: start: 20181106
  21. MILK OF MAGNESIA [Concomitant]
     Active Substance: MAGNESIUM HYDROXIDE
  22. NITROGLYCERIN. [Concomitant]
     Active Substance: NITROGLYCERIN

REACTIONS (1)
  - Hospitalisation [None]
